FAERS Safety Report 9021949 (Version 3)
Quarter: 2013Q1

REPORT INFORMATION
  Report Type: Spontaneous
  Country: IL (occurrence: IL)
  Receive Date: 20130118
  Receipt Date: 20130319
  Transmission Date: 20140127
  Serious: Yes (Death, Other)
  Sender: FDA-Public Use
  Company Number: IL-EISAI INC-E7389-03445-SPO-IL

PATIENT
  Age: 42 None
  Sex: Female

DRUGS (6)
  1. HALAVEN [Suspect]
     Indication: BREAST CANCER METASTATIC
     Route: 041
  2. CIPRAMIL [Concomitant]
     Indication: ANXIETY
  3. LYRICA [Concomitant]
     Indication: PAIN
  4. MIR [Concomitant]
     Indication: PAIN
  5. DEXAMETHASONE [Concomitant]
     Indication: METASTASES TO MENINGES
     Dosage: UNKNOWN
  6. OXYCODONE [Concomitant]
     Indication: PAIN
     Dosage: 10/3ML

REACTIONS (2)
  - Optic neuritis [Not Recovered/Not Resolved]
  - General physical health deterioration [Fatal]
